FAERS Safety Report 12430148 (Version 1)
Quarter: 2016Q2

REPORT INFORMATION
  Report Type: Spontaneous
  Country: US (occurrence: US)
  Receive Date: 20160602
  Receipt Date: 20160602
  Transmission Date: 20160815
  Serious: Yes (Hospitalization)
  Sender: FDA-Public Use
  Company Number: US-DSJP-DSU-2015-118546

PATIENT
  Age: 53 Year
  Sex: Female
  Weight: 32.71 kg

DRUGS (2)
  1. BENICAR [Suspect]
     Active Substance: OLMESARTAN MEDOXOMIL
     Indication: PRODUCT USED FOR UNKNOWN INDICATION
  2. BENICAR HCT [Suspect]
     Active Substance: HYDROCHLOROTHIAZIDE\OLMESARTAN MEDOXOMIL
     Indication: HYPERTENSION
     Dosage: 40/12.5 MG, QD

REACTIONS (17)
  - Acute kidney injury [Unknown]
  - Diverticulum [Unknown]
  - Irritable bowel syndrome [Unknown]
  - Haemorrhoids [Unknown]
  - Chronic gastritis [Unknown]
  - Haematochezia [Recovered/Resolved]
  - Oesophageal stenosis [Unknown]
  - Peptic ulcer [Unknown]
  - Duodenitis [Unknown]
  - Abdominal pain lower [Recovering/Resolving]
  - Gastrointestinal inflammation [Unknown]
  - Abdominal distension [Unknown]
  - Gastric mucosa erythema [Unknown]
  - Polyp [Unknown]
  - Hiatus hernia [Unknown]
  - Gastrooesophageal reflux disease [Unknown]
  - Malabsorption [Unknown]

NARRATIVE: CASE EVENT DATE: 201501
